FAERS Safety Report 9080607 (Version 1)
Quarter: 2013Q1

REPORT INFORMATION
  Report Type: Spontaneous
  Country: GB (occurrence: GB)
  Receive Date: 20130218
  Receipt Date: 20130218
  Transmission Date: 20140127
  Serious: Yes (Hospitalization, Other)
  Sender: FDA-Public Use
  Company Number: GB-BRISTOL-MYERS SQUIBB COMPANY-17379298

PATIENT
  Age: 68 Year
  Sex: Female
  Weight: 97 kg

DRUGS (13)
  1. METFORMIN HCL [Suspect]
     Route: 051
     Dates: start: 20030408, end: 20120725
  2. AMITRIPTYLINE [Concomitant]
  3. AMLODIPINE [Concomitant]
     Dates: start: 2005
  4. ATENOLOL [Concomitant]
     Dates: start: 2005
  5. CETRIZINE [Concomitant]
  6. FERROUS SULFATE [Concomitant]
  7. FUROSEMIDE [Concomitant]
     Dates: start: 2005
  8. HUMULIN [Concomitant]
  9. INSULIN [Concomitant]
  10. BIPHASIC ISOPHANE INSULIN [Concomitant]
  11. HYDROXYZINE [Concomitant]
  12. PERINDOPRIL [Concomitant]
     Dates: start: 2002
  13. SIMVASTATIN [Concomitant]

REACTIONS (4)
  - Renal failure acute [Recovered/Resolved]
  - Hypotension [Recovered/Resolved]
  - Dysarthria [Recovered/Resolved]
  - Malaise [Unknown]
